FAERS Safety Report 8110528-9 (Version None)
Quarter: 2012Q1

REPORT INFORMATION
  Report Type: 
  Country: None (occurrence: None)
  Receive Date: 20120202
  Receipt Date: 20120123
  Transmission Date: 20120608
  Serious: Yes (Other)
  Sender: FDA-Public Use
  Company Number: US-BRISTOL-MYERS SQUIBB COMPANY-16361958

PATIENT
  Age: 17 Month
  Sex: Male
  Weight: 9 kg

DRUGS (3)
  1. HEPARIN SODIUM [Suspect]
  2. WARFARIN SODIUM [Suspect]
  3. ASPIRIN [Suspect]

REACTIONS (2)
  - HEPARIN-INDUCED THROMBOCYTOPENIA [None]
  - THROMBOSIS [None]
